FAERS Safety Report 13586709 (Version 2)
Quarter: 2020Q3

REPORT INFORMATION
  Report Type: Report from Study
  Country: PL (occurrence: PL)
  Receive Date: 20170526
  Receipt Date: 20171102
  Transmission Date: 20201104
  Serious: Yes (Death, Life-Threatening, Hospitalization, Disabling, Other)
  Sender: FDA-Public Use
  Company Number: PL-ASTRAZENECA-2016SE74795

PATIENT
  Age: 23252 Day
  Sex: Male

DRUGS (16)
  1. TREMELIMUMAB. [Suspect]
     Active Substance: TREMELIMUMAB
     Indication: NON-SMALL CELL LUNG CANCER
     Route: 042
     Dates: start: 20160414, end: 20160414
  2. MEDI4736 [Suspect]
     Active Substance: DURVALUMAB
     Indication: NON-SMALL CELL LUNG CANCER
     Route: 042
     Dates: start: 20160414, end: 20160414
  3. MEDI4736 [Suspect]
     Active Substance: DURVALUMAB
     Indication: NON-SMALL CELL LUNG CANCER
     Route: 042
     Dates: start: 20160512, end: 20160512
  4. TRANSTEC [Concomitant]
     Active Substance: BUPRENORPHINE
     Indication: CANCER PAIN
     Dosage: 35 UG QH
     Route: 062
     Dates: end: 20160712
  5. HYDROCHLOROTHIAZIDE. [Concomitant]
     Active Substance: HYDROCHLOROTHIAZIDE
     Indication: HYPERTENSION
     Route: 048
  6. DICLOFENAC [Concomitant]
     Active Substance: DICLOFENAC
     Indication: PAIN
     Dosage: 75.00 MG OTHER 0?150MG
     Route: 048
     Dates: start: 20160404
  7. VALSARTAN. [Concomitant]
     Active Substance: VALSARTAN
     Indication: HYPERTENSION
     Route: 048
     Dates: end: 20160712
  8. TREMELIMUMAB. [Suspect]
     Active Substance: TREMELIMUMAB
     Indication: NON-SMALL CELL LUNG CANCER
     Route: 042
     Dates: start: 20160512, end: 20160512
  9. CONTROLOC [Concomitant]
     Active Substance: PANTOPRAZOLE SODIUM
     Indication: ULCER
     Route: 048
     Dates: end: 20160712
  10. BI?PROFENID [Concomitant]
     Active Substance: KETOPROFEN
     Indication: CANCER PAIN
     Route: 048
     Dates: end: 20160705
  11. FOLIK [Concomitant]
     Indication: PROPHYLAXIS
     Route: 048
     Dates: end: 20160414
  12. GLIBETIC [Concomitant]
     Indication: DIABETES MELLITUS
     Route: 048
     Dates: end: 20160616
  13. DEXAMETHASON [Concomitant]
     Active Substance: DEXAMETHASONE
     Indication: PNEUMONIA
     Route: 048
     Dates: start: 20160531, end: 20160705
  14. THYROZOL [Concomitant]
     Active Substance: METHIMAZOLE
     Indication: AUTOIMMUNE THYROIDITIS
     Dosage: 20.00 MG QID
     Route: 048
     Dates: start: 20160524, end: 20160708
  15. METFORMIN [Concomitant]
     Active Substance: METFORMIN HYDROCHLORIDE
     Indication: DIABETES MELLITUS
     Route: 048
     Dates: end: 20160616
  16. ISOPHANE INSULIN [Concomitant]
     Active Substance: INSULIN NOS
     Indication: DIABETES MELLITUS
     Route: 058
     Dates: start: 20160525, end: 20160712

REACTIONS (2)
  - Neutropenia [Not Recovered/Not Resolved]
  - Hepatitis [Fatal]

NARRATIVE: CASE EVENT DATE: 20160703
